FAERS Safety Report 8078205-0 (Version None)
Quarter: 2012Q1

REPORT INFORMATION
  Report Type: 
  Country: None (occurrence: None)
  Receive Date: 20120127
  Receipt Date: 20110126
  Transmission Date: 20120608
  Serious: No
  Sender: FDA-Public Use
  Company Number: US-ABBOTT-10P-163-0691424-00

PATIENT
  Age: 40 Year
  Sex: Female

DRUGS (15)
  1. NEXIUM [Concomitant]
     Indication: GASTROOESOPHAGEAL REFLUX DISEASE
  2. MIRALAX [Concomitant]
     Indication: CONSTIPATION
  3. HALLS COUGH DROPS [Concomitant]
     Indication: PRODUCT USED FOR UNKNOWN INDICATION
     Dates: start: 20101228
  4. HUMIRA [Suspect]
     Dates: start: 20110116
  5. VITAMIN TAB [Concomitant]
     Indication: PRODUCT USED FOR UNKNOWN INDICATION
  6. ZANAFLEX [Concomitant]
     Indication: MUSCLE SPASMS
     Dosage: AT BEDTIME
  7. METHADONE HCL [Concomitant]
     Indication: PAIN
  8. PERCOCET [Concomitant]
     Indication: BREAKTHROUGH PAIN
     Dosage: 10-325MG, 1 PILL AS REQUIRED
  9. CELEXA [Concomitant]
     Indication: DEPRESSION
  10. GAS-X [Concomitant]
     Indication: PRODUCT USED FOR UNKNOWN INDICATION
  11. MULTI-VITAMIN [Concomitant]
     Indication: PRODUCT USED FOR UNKNOWN INDICATION
     Dosage: PRENATAL
  12. GAS-X [Concomitant]
  13. IRON [Concomitant]
     Indication: MINERAL SUPPLEMENTATION
  14. MULTI-VITAMINS [Concomitant]
     Indication: PRODUCT USED FOR UNKNOWN INDICATION
  15. HUMIRA [Suspect]
     Indication: CROHN'S DISEASE
     Dates: start: 20100805, end: 20101228

REACTIONS (19)
  - PRODUCTIVE COUGH [None]
  - ABDOMINAL PAIN [None]
  - INJECTION SITE ERYTHEMA [None]
  - NASOPHARYNGITIS [None]
  - OEDEMA PERIPHERAL [None]
  - NODULE [None]
  - DYSPHONIA [None]
  - HEADACHE [None]
  - PAIN IN EXTREMITY [None]
  - CONSTIPATION [None]
  - SINUS CONGESTION [None]
  - OROPHARYNGEAL PAIN [None]
  - HYPOPHAGIA [None]
  - CHEST PAIN [None]
  - ACTIVITIES OF DAILY LIVING IMPAIRED [None]
  - OCULAR HYPERAEMIA [None]
  - DYSPNOEA [None]
  - INJECTION SITE WARMTH [None]
  - ABDOMINAL DISTENSION [None]
